FAERS Safety Report 5790284-X (Version None)
Quarter: 2008Q2

REPORT INFORMATION
  Report Type: 
  Country: None (occurrence: None)
  Receive Date: 20080626
  Receipt Date: 20080512
  Transmission Date: 20081010
  Serious: No
  Sender: FDA-Public Use
  Company Number: A0707741A

PATIENT

DRUGS (2)
  1. ALLI [Suspect]
     Indication: DRUG USE FOR UNKNOWN INDICATION
  2. GAS X [Concomitant]

REACTIONS (15)
  - ABDOMINAL DISTENSION [None]
  - ABDOMINAL PAIN UPPER [None]
  - ANOREXIA [None]
  - BLOOD GLUCOSE ABNORMAL [None]
  - DEHYDRATION [None]
  - DEPRESSED MOOD [None]
  - DRUG INEFFECTIVE [None]
  - FATIGUE [None]
  - FLATULENCE [None]
  - FOOD CRAVING [None]
  - HORMONE LEVEL ABNORMAL [None]
  - ILL-DEFINED DISORDER [None]
  - MALAISE [None]
  - MIGRAINE [None]
  - POOR QUALITY SLEEP [None]
